FAERS Safety Report 24872491 (Version 1)
Quarter: 2025Q1

REPORT INFORMATION
  Report Type: Other
  Country: GB (occurrence: GB)
  Receive Date: 20250122
  Receipt Date: 20250122
  Transmission Date: 20250409
  Serious: Yes (Other)
  Sender: STRIDES
  Company Number: None

PATIENT
  Age: 68 Year
  Sex: Male
  Weight: 98 kg

DRUGS (1)
  1. COLCHICINE [Suspect]
     Active Substance: COLCHICINE
     Indication: Gout
     Route: 048
     Dates: start: 20241129, end: 20241201

REACTIONS (1)
  - Renal pain [Recovered/Resolved]

NARRATIVE: CASE EVENT DATE: 20241201
